FAERS Safety Report 20931428 (Version 2)
Quarter: 2022Q2

REPORT INFORMATION
  Report Type: Spontaneous
  Country: BR (occurrence: BR)
  Receive Date: 20220608
  Receipt Date: 20220610
  Transmission Date: 20220721
  Serious: Yes (Other)
  Sender: FDA-Public Use
  Company Number: BR-NOVARTISPH-NVSC2022BR129239

PATIENT
  Age: 63 Year
  Sex: Female
  Weight: 76.01 kg

DRUGS (6)
  1. BRINZOLAMIDE\TIMOLOL MALEATE [Suspect]
     Active Substance: BRINZOLAMIDE\TIMOLOL MALEATE
     Indication: Ocular discomfort
     Dosage: 1 DRP, Q12H (EVERY EYE, STARTED AFTER 2013)
     Route: 047
  2. TEGRETOL XR [Suspect]
     Active Substance: CARBAMAZEPINE
     Indication: Bone disorder
     Dosage: UNK
     Route: 065
     Dates: start: 20220125, end: 20220509
  3. EXFORGE HCT [Concomitant]
     Active Substance: AMLODIPINE BESYLATE\HYDROCHLOROTHIAZIDE\VALSARTAN
     Indication: Blood pressure measurement
     Dosage: 160 MG
     Route: 065
  4. EXFORGE HCT [Concomitant]
     Active Substance: AMLODIPINE BESYLATE\HYDROCHLOROTHIAZIDE\VALSARTAN
     Dosage: 12.5 MG
     Route: 065
  5. EXFORGE HCT [Concomitant]
     Active Substance: AMLODIPINE BESYLATE\HYDROCHLOROTHIAZIDE\VALSARTAN
     Dosage: 10 MG
     Route: 065
  6. EXFORGE HCT [Concomitant]
     Active Substance: AMLODIPINE BESYLATE\HYDROCHLOROTHIAZIDE\VALSARTAN
     Dosage: UNK, QD
     Route: 048
     Dates: start: 20220527

REACTIONS (8)
  - Epistaxis [Not Recovered/Not Resolved]
  - Blood pressure decreased [Not Recovered/Not Resolved]
  - Dizziness [Not Recovered/Not Resolved]
  - Paraesthesia [Not Recovered/Not Resolved]
  - Headache [Unknown]
  - Cough [Unknown]
  - Neoplasm [Unknown]
  - Product use in unapproved indication [Not Recovered/Not Resolved]

NARRATIVE: CASE EVENT DATE: 20220428
